FAERS Safety Report 12778762 (Version 1)
Quarter: 2016Q3

REPORT INFORMATION
  Report Type: Spontaneous
  Country: RU (occurrence: RU)
  Receive Date: 20160926
  Receipt Date: 20160926
  Transmission Date: 20161109
  Serious: Yes (Other)
  Sender: FDA-Public Use
  Company Number: RU-ROCHE-1814065

PATIENT
  Age: 40 Year
  Sex: Male

DRUGS (4)
  1. RIBAVIRIN. [Suspect]
     Active Substance: RIBAVIRIN
     Indication: CHRONIC HEPATITIS C
     Dosage: DOSE CALCULATED BASED ON BODY WEIGHT, TAKEN DAILY AFTER FOOD
     Route: 065
     Dates: start: 20140317
  2. RIBAVIRIN. [Suspect]
     Active Substance: RIBAVIRIN
     Dosage: FOR 14 DAYS
     Route: 065
  3. PEG-INTERFERON ALFA 2A [Suspect]
     Active Substance: PEGINTERFERON ALFA-2A
     Indication: CHRONIC HEPATITIS C
     Dosage: DOSE: 159.3 UG IN 0.8 ML
     Route: 058
     Dates: start: 20140317
  4. RIBAVIRIN. [Suspect]
     Active Substance: RIBAVIRIN
     Route: 065

REACTIONS (5)
  - Anaemia [Unknown]
  - Weight decreased [Unknown]
  - Neutropenia [Unknown]
  - Drug ineffective [Unknown]
  - Leukopenia [Unknown]

NARRATIVE: CASE EVENT DATE: 20140609
